FAERS Safety Report 4653274-6 (Version None)
Quarter: 2005Q2

REPORT INFORMATION
  Report Type: 
  Country: None (occurrence: None)
  Receive Date: 20050505
  Receipt Date: 20050426
  Transmission Date: 20051028
  Serious: Yes (Other)
  Sender: FDA-Public Use
  Company Number: MW-BOEHRINGER INGELHEIM PHARMACEUTICALS, INC.-2005-DE-01588GD

PATIENT

DRUGS (2)
  1. NEVIRAPINE [Suspect]
     Indication: PROPHYLAXIS AGAINST HIV INFECTION
     Route: 015
  2. NEVIRAPINE [Suspect]

REACTIONS (2)
  - DRUG EXPOSURE DURING PREGNANCY [None]
  - HUMAN IMMUNODEFICIENCY VIRUS TRANSMISSION [None]
